FAERS Safety Report 4862686-7 (Version None)
Quarter: 2005Q4

REPORT INFORMATION
  Report Type: 
  Country: None (occurrence: None)
  Receive Date: 20051221
  Receipt Date: 20050930
  Transmission Date: 20060501
  Serious: Yes (Hospitalization, Disabling, Other)
  Sender: FDA-Public Use
  Company Number: US-MERCK-0510USA02031

PATIENT
  Age: 66 Year
  Sex: Male
  Weight: 114 kg

DRUGS (43)
  1. VEXOL [Concomitant]
     Indication: EYE INFLAMMATION
     Route: 065
  2. KLOR-CON [Concomitant]
     Indication: HYPOKALAEMIA
     Route: 065
  3. POTASSIUM CHLORIDE [Concomitant]
     Indication: HYPOKALAEMIA
     Route: 065
  4. LISINOPRIL [Concomitant]
     Indication: HYPERTENSION
     Route: 065
  5. LISINOPRIL [Concomitant]
     Indication: CARDIAC FAILURE
     Route: 065
  6. PROCHLORPERAZINE [Concomitant]
     Indication: NAUSEA
     Route: 065
  7. PROCHLORPERAZINE [Concomitant]
     Indication: VOMITING
     Route: 065
  8. PERIOGARD [Concomitant]
     Route: 065
  9. DOXYCLIN [Concomitant]
     Route: 065
  10. PREDNISOLONE [Concomitant]
     Indication: SWELLING
     Route: 065
  11. VOLTAREN [Concomitant]
     Indication: PAIN
     Route: 065
  12. VOLTAREN [Concomitant]
     Indication: INFLAMMATION
     Route: 065
  13. PRED FORTE [Concomitant]
     Indication: SWELLING
     Route: 065
  14. CILOXAN [Concomitant]
     Route: 065
  15. FLONASE [Concomitant]
     Indication: HYPERSENSITIVITY
     Route: 065
  16. ALLFEN DM [Concomitant]
     Indication: COUGH
     Route: 065
  17. CEPHALEXIN [Concomitant]
     Indication: BACTERIAL INFECTION
     Route: 065
  18. TUSSIONEX (CHLORPHENIRAMINE POLISTIREX (+) HYDROCODONE POLISTIREX) [Concomitant]
     Indication: ANTIALLERGIC THERAPY
     Route: 065
  19. LEVAQUIN [Concomitant]
     Indication: BACTERIAL INFECTION
     Route: 065
  20. PENICILLIN V [Concomitant]
     Route: 065
  21. HYDROCODONE HYDROCHLORIDE [Concomitant]
     Route: 065
  22. TRAMADOL HYDROCHLORIDE [Concomitant]
     Indication: ANALGESIC EFFECT
     Route: 065
  23. PROMETHAZINE [Concomitant]
     Route: 065
  24. ATENOLOL [Concomitant]
     Indication: HYPERTENSION
     Route: 065
  25. ATENOLOL [Concomitant]
     Indication: ANGINA PECTORIS
     Route: 065
  26. VIOXX [Suspect]
     Indication: ARTHRITIS
     Route: 048
     Dates: start: 20001101, end: 20010101
  27. VIOXX [Suspect]
     Route: 048
     Dates: start: 20010101, end: 20040901
  28. CARTIA XT [Concomitant]
     Indication: HYPERTENSION
     Route: 065
  29. LOTEMAX [Concomitant]
     Indication: EYE INFLAMMATION
     Route: 065
  30. TOBRAMYCIN [Concomitant]
     Route: 065
  31. PREVACID [Concomitant]
     Indication: HYPERCHLORHYDRIA
     Route: 065
  32. HYDROCHLOROTHIAZIDE [Concomitant]
     Indication: POLYURIA
     Route: 065
  33. OCUFLOX [Concomitant]
     Route: 065
  34. ALPHAGAN [Concomitant]
     Indication: EYE DISORDER
     Route: 065
  35. ACETAZOLAMIDE [Concomitant]
     Route: 065
  36. OXYCODONE [Concomitant]
     Indication: ANALGESIC EFFECT
     Route: 065
  37. ERYTHROMYCIN [Concomitant]
     Indication: BACTERIAL INFECTION
     Route: 065
  38. CYCLOGYL [Concomitant]
     Route: 065
  39. CLINDAMYCIN [Concomitant]
     Route: 065
  40. CHLORHEXIDINE ACETATE [Concomitant]
     Route: 065
  41. PROPOXYPHENE HYDROCHLORIDE [Concomitant]
     Route: 065
  42. ACULAR [Concomitant]
     Indication: EYE PAIN
     Route: 065
  43. ACULAR [Concomitant]
     Indication: EYE INFLAMMATION
     Route: 065

REACTIONS (13)
  - ANGINA PECTORIS [None]
  - ARRHYTHMIA [None]
  - ARTHRALGIA [None]
  - ATRIAL FIBRILLATION [None]
  - BLOOD CHOLESTEROL INCREASED [None]
  - CARDIAC DISORDER [None]
  - GASTROOESOPHAGEAL REFLUX DISEASE [None]
  - GOUT [None]
  - HEART RATE IRREGULAR [None]
  - HYPERTENSION [None]
  - MYOCARDIAL INFARCTION [None]
  - RETINAL DISORDER [None]
  - ROAD TRAFFIC ACCIDENT [None]
